FAERS Safety Report 5422497-0 (Version None)
Quarter: 2007Q3

REPORT INFORMATION
  Report Type: 
  Country: None (occurrence: None)
  Receive Date: 20070822
  Receipt Date: 20070822
  Transmission Date: 20080115
  Serious: Yes (Other)
  Sender: FDA-Public Use
  Company Number: A0673389A

PATIENT

DRUGS (1)
  1. ALLI [Suspect]
     Route: 048

REACTIONS (2)
  - INCONTINENCE [None]
  - RECTAL DISCHARGE [None]
